FAERS Safety Report 14347781 (Version 2)
Quarter: 2018Q1

REPORT INFORMATION
  Report Type: Report from Study
  Country: BR (occurrence: BR)
  Receive Date: 20180103
  Receipt Date: 20180313
  Transmission Date: 20180509
  Serious: Yes (Other)
  Sender: FDA-Public Use
  Company Number: PHHY2017BR074916

PATIENT
  Sex: Female
  Weight: 35 kg

DRUGS (3)
  1. ANDROCUR [Concomitant]
     Active Substance: CYPROTERONE ACETATE
     Indication: PROPHYLAXIS
     Dosage: 1 DF, QD (STARTED 2 YEARS AGO)
     Route: 048
  2. OMNITROPE [Suspect]
     Active Substance: SOMATROPIN
     Indication: GROWTH RETARDATION
     Dosage: 1 MG, QD
     Route: 058
     Dates: start: 20160825, end: 201703
  3. OMNITROPE [Suspect]
     Active Substance: SOMATROPIN
     Indication: BODY HEIGHT BELOW NORMAL
     Dosage: 1 MG, QD
     Route: 058
     Dates: end: 201707

REACTIONS (2)
  - Blood growth hormone increased [Recovered/Resolved]
  - Endocrine disorder [Unknown]
